FAERS Safety Report 5280595-9 (Version None)
Quarter: 2007Q1

REPORT INFORMATION
  Report Type: 
  Country: None (occurrence: None)
  Receive Date: 20061229
  Receipt Date: 20060711
  Transmission Date: 20070707
  Serious: Yes (Other)
  Sender: FDA-Public Use
  Company Number: 2006UW14291

PATIENT
  Age: 55 Year
  Sex: Female
  Weight: 102.51 kg

DRUGS (5)
  1. CRESTOR [Suspect]
     Indication: BLOOD CHOLESTEROL INCREASED
     Dosage: 20 MG PO
     Route: 048
     Dates: start: 20060623, end: 20060624
  2. METOPROLOL SUCCINATE [Concomitant]
  3. NORVASC [Concomitant]
  4. LOTENSIN [Concomitant]
  5. TORADOL [Concomitant]

REACTIONS (6)
  - ABASIA [None]
  - ASTHENIA [None]
  - BURNING SENSATION [None]
  - HYPERAESTHESIA [None]
  - JOINT SWELLING [None]
  - MYALGIA [None]
